FAERS Safety Report 24034501 (Version 3)
Quarter: 2024Q3

REPORT INFORMATION
  Report Type: Spontaneous
  Country: NZ (occurrence: NZ)
  Receive Date: 20240701
  Receipt Date: 20240805
  Transmission Date: 20241017
  Serious: Yes (Other)
  Sender: MYLAN
  Company Number: NZ-MYLANLABS-2024M1058189

PATIENT
  Age: 49 Year
  Sex: Female
  Weight: 112.8 kg

DRUGS (5)
  1. CLOZARIL [Suspect]
     Active Substance: CLOZAPINE
     Indication: Schizophrenia
     Dosage: UNK
     Route: 048
     Dates: start: 19980202
  2. CLOZARIL [Suspect]
     Active Substance: CLOZAPINE
     Dosage: 325 MILLIGRAM, QD (100MG MANE, 200MG NOCTE, 25MG, MIDI.)
     Route: 048
     Dates: start: 2000
  3. CLOZARIL [Suspect]
     Active Substance: CLOZAPINE
     Dosage: 25 MILLIGRAM, QD
     Route: 048
  4. TRANEXAMIC ACID [Concomitant]
     Active Substance: TRANEXAMIC ACID
     Dosage: 1 GRAM, TID (1G TDS) (FIRST 4 DAYS OF PERIOD)
     Route: 048
     Dates: start: 20240118
  5. LACTULOSE [Concomitant]
     Active Substance: LACTULOSE
     Dosage: 20 MILLILITER, PM (20ML, NOCET, LONG TERM)
     Route: 048

REACTIONS (11)
  - Otitis media [Recovered/Resolved]
  - Neutropenia [Recovered/Resolved]
  - Illness [Unknown]
  - Red cell distribution width increased [Not Recovered/Not Resolved]
  - Mean cell haemoglobin decreased [Not Recovered/Not Resolved]
  - Haemoglobin decreased [Not Recovered/Not Resolved]
  - Mean cell volume decreased [Not Recovered/Not Resolved]
  - Haematocrit decreased [Not Recovered/Not Resolved]
  - White blood cell count decreased [Recovered/Resolved]
  - Lymphocyte count decreased [Not Recovered/Not Resolved]
  - Microcytic anaemia [Unknown]

NARRATIVE: CASE EVENT DATE: 20231211
